FAERS Safety Report 7911187-8 (Version None)
Quarter: 2011Q4

REPORT INFORMATION
  Report Type: 
  Country: None (occurrence: None)
  Receive Date: 20111114
  Receipt Date: 20111109
  Transmission Date: 20120403
  Serious: Yes (Hospitalization)
  Sender: FDA-Public Use
  Company Number: US-JNJFOC-20110309908

PATIENT
  Sex: Female

DRUGS (4)
  1. METHYLPREDNISOLONE [Suspect]
     Indication: LUNG INFECTION
     Route: 042
     Dates: start: 20100112
  2. LEVAQUIN [Suspect]
     Indication: LUNG INFECTION
     Route: 042
     Dates: start: 20100112
  3. LEVAQUIN [Suspect]
     Indication: BRONCHITIS
     Route: 065
  4. PREDNISONE TAB [Suspect]
     Indication: LUNG INFECTION
     Route: 065

REACTIONS (9)
  - HERNIA [None]
  - TENDON PAIN [None]
  - DRUG INEFFECTIVE [None]
  - HYPERTENSION [None]
  - PAIN IN EXTREMITY [None]
  - STEVENS-JOHNSON SYNDROME [None]
  - DYSPNOEA [None]
  - CHOKING [None]
  - INCREASED UPPER AIRWAY SECRETION [None]
